FAERS Safety Report 25417584 (Version 3)
Quarter: 2025Q2

REPORT INFORMATION
  Report Type: Spontaneous
  Country: US (occurrence: US)
  Receive Date: 20250610
  Receipt Date: 20250627
  Transmission Date: 20250716
  Serious: No
  Sender: BLUEPRINT MEDICINES
  Company Number: US-Blueprint Medicines Corporation-2025-AER-01218

PATIENT
  Age: 49 Year
  Sex: Male

DRUGS (1)
  1. AYVAKIT [Suspect]
     Active Substance: AVAPRITINIB
     Indication: Systemic mastocytosis
     Route: 065
     Dates: start: 20250529

REACTIONS (7)
  - Aphasia [Unknown]
  - Arthralgia [Unknown]
  - Sleep disorder [Recovered/Resolved]
  - Feeling abnormal [Unknown]
  - Pain [Unknown]
  - Poor quality sleep [Unknown]
  - Blood test abnormal [Unknown]
